FAERS Safety Report 12396738 (Version 1)
Quarter: 2016Q2

REPORT INFORMATION
  Report Type: Spontaneous
  Country: US (occurrence: US)
  Receive Date: 20160524
  Receipt Date: 20160524
  Transmission Date: 20160815
  Serious: No
  Sender: FDA-Public Use
  Company Number: US-GE HEALTHCARE MEDICAL DIAGNOSTICS-INOX-PR-1603S-0001

PATIENT
  Sex: Female

DRUGS (3)
  1. INDIUM IN111 OXINE [Suspect]
     Active Substance: INDIUM
     Indication: DIAGNOSTIC PROCEDURE
  2. INDIUM IN111 OXINE [Suspect]
     Active Substance: INDIUM
     Indication: INFLAMMATION
     Route: 042
     Dates: start: 20160307, end: 20160307
  3. INDIUM IN111 OXINE [Suspect]
     Active Substance: INDIUM
     Indication: INFECTION

REACTIONS (1)
  - Cyanosis [Unknown]

NARRATIVE: CASE EVENT DATE: 20160301
